FAERS Safety Report 4704029-5 (Version None)
Quarter: 2005Q2

REPORT INFORMATION
  Report Type: 
  Country: None (occurrence: None)
  Receive Date: 20050628
  Receipt Date: 20050613
  Transmission Date: 20051028
  Serious: Yes (Death)
  Sender: FDA-Public Use
  Company Number: USA050393595

PATIENT
  Age: 89 Year
  Sex: Female
  Weight: 36 kg

DRUGS (2)
  1. ZYPREXA [Suspect]
     Indication: DEMENTIA
  2. ZYPREXA [Suspect]
     Indication: PSYCHOTIC DISORDER

REACTIONS (7)
  - DECREASED APPETITE [None]
  - DISEASE PROGRESSION [None]
  - GENERAL PHYSICAL HEALTH DETERIORATION [None]
  - URINARY TRACT INFECTION [None]
  - UROSEPSIS [None]
  - VASCULAR DEMENTIA [None]
  - WEIGHT DECREASED [None]
